FAERS Safety Report 10756086 (Version 1)
Quarter: 2015Q1

REPORT INFORMATION
  Report Type: Spontaneous
  Country: US (occurrence: US)
  Receive Date: 20150202
  Receipt Date: 20150202
  Transmission Date: 20150721
  Serious: Yes (Other)
  Sender: FDA-Public Use
  Company Number: US-PFIZER INC-2015042694

PATIENT
  Age: 48 Year
  Sex: Female
  Weight: 68.27 kg

DRUGS (1)
  1. PRISTIQ EXTENDED RELEASE [Suspect]
     Active Substance: DESVENLAFAXINE SUCCINATE
     Indication: DEPRESSION
     Dosage: 15 MG, 1X/DAY

REACTIONS (1)
  - Ankle fracture [Unknown]

NARRATIVE: CASE EVENT DATE: 20150114
